FAERS Safety Report 9301917 (Version 4)
Quarter: 2013Q3

REPORT INFORMATION
  Report Type: Spontaneous
  Country: US (occurrence: US)
  Receive Date: 20130521
  Receipt Date: 20130712
  Transmission Date: 20140515
  Serious: Yes (Other)
  Sender: FDA-Public Use
  Company Number: US-PFIZER INC-2013151491

PATIENT
  Age: 55 Year
  Sex: Female
  Weight: 109 kg

DRUGS (3)
  1. XALATAN [Suspect]
     Indication: OPEN ANGLE GLAUCOMA
     Dosage: 1 GTT, AT BED TIME BOTH EYES
     Route: 047
     Dates: start: 20130321, end: 2013
  2. XALATAN [Suspect]
     Dosage: 1 GTT, 1X/DAY AT NIGHT
     Route: 047
     Dates: start: 20130324, end: 201304
  3. XALATAN [Suspect]
     Dosage: 1 GTT, 1X/DAY
     Route: 047
     Dates: start: 20130513, end: 20130514

REACTIONS (11)
  - Tremor [Recovered/Resolved]
  - Dyspnoea [Unknown]
  - Activities of daily living impaired [Recovered/Resolved]
  - Intraocular pressure increased [Unknown]
  - Vertigo [Recovered/Resolved]
  - Dizziness [Recovered/Resolved]
  - Abdominal distension [Recovered/Resolved]
  - Abdominal pain [Recovered/Resolved]
  - Tenderness [Recovered/Resolved]
  - Fatigue [Recovered/Resolved]
  - Asthenia [Recovered/Resolved]
